FAERS Safety Report 5415194-9 (Version None)
Quarter: 2007Q3

REPORT INFORMATION
  Report Type: 
  Country: None (occurrence: None)
  Receive Date: 20070815
  Receipt Date: 20070713
  Transmission Date: 20080115
  Serious: No
  Sender: FDA-Public Use
  Company Number: A0664993A

PATIENT
  Sex: Female

DRUGS (4)
  1. COREG CR [Suspect]
  2. FLUDARABINE PHOSPHATE [Suspect]
     Indication: CHEMOTHERAPY
  3. DEXAMETHASONE 0.5MG TAB [Suspect]
     Indication: CHEMOTHERAPY
  4. LISINOPRIL [Suspect]
     Dosage: 40MG TWICE PER DAY

REACTIONS (3)
  - ACCIDENTAL OVERDOSE [None]
  - BLOOD PRESSURE DECREASED [None]
  - DRUG ADMINISTRATION ERROR [None]
